FAERS Safety Report 7083553-7 (Version None)
Quarter: 2010Q4

REPORT INFORMATION
  Report Type: 
  Country: None (occurrence: None)
  Receive Date: 20101027
  Receipt Date: 20101013
  Transmission Date: 20110411
  Serious: Yes (Hospitalization)
  Sender: FDA-Public Use
  Company Number: 020306

PATIENT
  Sex: Female
  Weight: 72 kg

DRUGS (6)
  1. CERTOLIZUMAB PEGOL (CDP870) [Suspect]
     Indication: RHEUMATOID ARTHRITIS
     Dosage: (400 MG 1X/2 WEEKS, CDP870-050 SUBCUTANEOUS), (400 MG 1X/2 WEEKS, NO OF DOSES RECEIVED: 115 SUBCUTAN
     Route: 058
     Dates: start: 20051201, end: 20060518
  2. CERTOLIZUMAB PEGOL (CDP870) [Suspect]
     Indication: RHEUMATOID ARTHRITIS
     Dosage: (400 MG 1X/2 WEEKS, CDP870-050 SUBCUTANEOUS), (400 MG 1X/2 WEEKS, NO OF DOSES RECEIVED: 115 SUBCUTAN
     Route: 058
     Dates: start: 20060518
  3. METHOTREXATE [Concomitant]
  4. NIMESULIDE [Concomitant]
  5. METHYLPREDNISOLONE [Concomitant]
  6. ACIDUM FOLICUM [Concomitant]

REACTIONS (2)
  - ANAL ABSCESS [None]
  - PYREXIA [None]
